FAERS Safety Report 11693221 (Version 1)
Quarter: 2015Q4

REPORT INFORMATION
  Report Type: Spontaneous
  Country: FR (occurrence: FR)
  Receive Date: 20151103
  Receipt Date: 20151103
  Transmission Date: 20160304
  Serious: Yes (Life-Threatening, Other)
  Sender: FDA-Public Use
  Company Number: FR-GLAXOSMITHKLINE-FR2015GSK156702

PATIENT
  Age: 63 Year
  Sex: Male

DRUGS (11)
  1. PROPOFOL. [Suspect]
     Active Substance: PROPOFOL
     Indication: INDUCTION OF ANAESTHESIA
     Dosage: UNK
     Route: 042
     Dates: start: 20150222, end: 20150222
  2. CATAPRESSAN [Concomitant]
     Active Substance: CLONIDINE
     Indication: LOCAL ANAESTHESIA
     Dosage: UNK
     Dates: start: 20150222, end: 20150222
  3. CHIROCAINE [Concomitant]
     Active Substance: LEVOBUPIVACAINE HYDROCHLORIDE
     Indication: LOCAL ANAESTHESIA
     Dosage: UNK
     Dates: start: 20150222, end: 20150222
  4. SUFENTANIL [Suspect]
     Active Substance: SUFENTANIL
     Indication: INDUCTION OF ANAESTHESIA
     Dosage: UNK
     Route: 042
     Dates: start: 20150222, end: 20150222
  5. DAFALGAN [Concomitant]
     Active Substance: ACETAMINOPHEN
  6. TRACRIUM [Suspect]
     Active Substance: ATRACURIUM BESYLATE
     Indication: INDUCTION OF ANAESTHESIA
     Dosage: UNK
     Route: 042
     Dates: start: 20150222, end: 20150222
  7. CEFUROXIME SODIUM. [Suspect]
     Active Substance: CEFUROXIME SODIUM
     Indication: ANTIBIOTIC PROPHYLAXIS
     Dosage: UNK
     Route: 042
     Dates: start: 20150222, end: 20150222
  8. KETAMINE [Suspect]
     Active Substance: KETAMINE
     Indication: INDUCTION OF ANAESTHESIA
     Dosage: UNK
     Route: 042
     Dates: start: 20150222, end: 20150222
  9. TRAMADOL. [Concomitant]
     Active Substance: TRAMADOL
  10. XANAX [Concomitant]
     Active Substance: ALPRAZOLAM
     Indication: PREMEDICATION
     Dosage: 0.5 MG, SINGLE
     Dates: start: 20150222
  11. MICARDIS [Concomitant]
     Active Substance: TELMISARTAN
     Dosage: UNK

REACTIONS (1)
  - Cardiogenic shock [Recovered/Resolved]

NARRATIVE: CASE EVENT DATE: 20150222
